FAERS Safety Report 17516930 (Version 1)
Quarter: 2020Q1

REPORT INFORMATION
  Report Type: Spontaneous
  Country: US (occurrence: US)
  Receive Date: 20200307
  Receipt Date: 20200307
  Transmission Date: 20200409
  Serious: No
  Sender: FDA-Public Use
  Company Number: None

PATIENT
  Age: 13 Year
  Sex: Male
  Weight: 56.25 kg

DRUGS (3)
  1. VITASSIUM [Concomitant]
  2. FLUDROCORTISONE [Suspect]
     Active Substance: FLUDROCORTISONE
     Indication: POSTURAL ORTHOSTATIC TACHYCARDIA SYNDROME
     Route: 048
     Dates: start: 20200113, end: 20200307
  3. LUVOX [Concomitant]
     Active Substance: FLUVOXAMINE MALEATE

REACTIONS (4)
  - Nightmare [None]
  - Agitation [None]
  - Anxiety [None]
  - Abnormal dreams [None]

NARRATIVE: CASE EVENT DATE: 20200126
